FAERS Safety Report 5264741-9 (Version None)
Quarter: 2007Q1

REPORT INFORMATION
  Report Type: 
  Country: None (occurrence: None)
  Receive Date: 20061124
  Receipt Date: 20061011
  Transmission Date: 20070707
  Serious: Yes (Life-Threatening, Hospitalization, Disabling, Other)
  Sender: FDA-Public Use
  Company Number: WAES 0610USA08499

PATIENT
  Age: 74 Year
  Sex: Female

DRUGS (12)
  1. TAB VYTORIN 10-80 MG TAB VYTORIN 10-40 MG [Suspect]
     Indication: BLOOD CHOLESTEROL INCREASED
     Dosage: SEE IMAGE
     Route: 048
     Dates: start: 20060901, end: 20060901
  2. TAB VYTORIN 10-80 MG TAB VYTORIN 10-40 MG [Suspect]
     Indication: BLOOD CHOLESTEROL INCREASED
     Dosage: SEE IMAGE
     Route: 048
     Dates: end: 20060901
  3. ACIPHEX [Concomitant]
  4. AMBIEN [Concomitant]
  5. BONIVA [Concomitant]
  6. LASIX [Concomitant]
  7. LOPID [Concomitant]
  8. LOPRESSOR [Concomitant]
  9. LORTAB [Concomitant]
  10. RHINOCORT [Concomitant]
  11. ASPIRIN [Concomitant]
  12. .. [Concomitant]

REACTIONS (1)
  - RHABDOMYOLYSIS [None]
